FAERS Safety Report 9595231 (Version 2)
Quarter: 2013Q4

REPORT INFORMATION
  Report Type: Spontaneous
  Country: US (occurrence: US)
  Receive Date: 20131004
  Receipt Date: 20131004
  Transmission Date: 20140711
  Serious: No
  Sender: FDA-Public Use
  Company Number: US-PURDUE-USA-2012-0093393

PATIENT
  Sex: Female

DRUGS (1)
  1. BUTRANS [Suspect]
     Indication: PRODUCT USED FOR UNKNOWN INDICATION
     Dosage: 20 MCG, UNK
     Route: 062

REACTIONS (6)
  - Oropharyngeal pain [Unknown]
  - Bronchitis [Not Recovered/Not Resolved]
  - Burning sensation [Unknown]
  - Application site perspiration [Unknown]
  - Product adhesion issue [Unknown]
  - Pyrexia [Not Recovered/Not Resolved]
